FAERS Safety Report 19986129 (Version 3)
Quarter: 2021Q4

REPORT INFORMATION
  Report Type: Spontaneous
  Country: US (occurrence: US)
  Receive Date: 20211022
  Receipt Date: 20211124
  Transmission Date: 20220303
  Serious: No
  Sender: FDA-Public Use
  Company Number: US-ALKERMES INC.-ALK-2021-005426

PATIENT
  Age: 28 Year
  Sex: Female

DRUGS (3)
  1. ARISTADA [Suspect]
     Active Substance: ARIPIPRAZOLE LAUROXIL
     Indication: Bipolar I disorder
     Dosage: 1064 MILLIGRAM
     Route: 030
     Dates: start: 202110
  2. ARISTADA INITIO [Suspect]
     Active Substance: ARIPIPRAZOLE LAUROXIL
     Indication: Bipolar I disorder
     Dosage: 675 MILLIGRAM, ONE TIME DOSE
     Route: 030
     Dates: start: 202110, end: 202110
  3. ABILIFY [Concomitant]
     Active Substance: ARIPIPRAZOLE
     Indication: Bipolar I disorder
     Dosage: 30 MILLIGRAM, ONE TIME DOSE
     Route: 048
     Dates: start: 202110, end: 202110

REACTIONS (6)
  - Off label use [Not Recovered/Not Resolved]
  - Mania [Not Recovered/Not Resolved]
  - Product administration error [Recovered/Resolved]
  - Obsessive-compulsive personality disorder [Not Recovered/Not Resolved]
  - Increased appetite [Not Recovered/Not Resolved]
  - Fatigue [Not Recovered/Not Resolved]

NARRATIVE: CASE EVENT DATE: 20210101
